FAERS Safety Report 18713156 (Version 2)
Quarter: 2021Q1

REPORT INFORMATION
  Report Type: Other
  Country: GB (occurrence: GB)
  Receive Date: 20210107
  Receipt Date: 20210204
  Transmission Date: 20210419
  Serious: Yes (Other)
  Sender: FDA-Public Use
  Company Number: GB-STRIDES ARCOLAB LIMITED-2021SP000147

PATIENT
  Age: 57 Year
  Sex: Female

DRUGS (3)
  1. PANADOL ADVANCE [Suspect]
     Active Substance: ACETAMINOPHEN
     Indication: RHEUMATOID ARTHRITIS
  2. PANADOL ADVANCE [Suspect]
     Active Substance: ACETAMINOPHEN
     Indication: OSTEOARTHRITIS
     Dosage: UNK
     Route: 065
     Dates: start: 20201222
  3. IBUPROFEN. [Suspect]
     Active Substance: IBUPROFEN
     Indication: PRODUCT USED FOR UNKNOWN INDICATION
     Dosage: UNK
     Route: 065

REACTIONS (17)
  - Pain [Unknown]
  - Oral discomfort [Unknown]
  - Burning sensation [Unknown]
  - Erythema [Unknown]
  - Coeliac disease [Unknown]
  - Hypoaesthesia oral [Unknown]
  - Epigastric discomfort [Unknown]
  - Cystitis [Unknown]
  - Dermatitis contact [Unknown]
  - Dyspnoea [Unknown]
  - Epistaxis [Unknown]
  - Asthma [Unknown]
  - Abdominal pain upper [Unknown]
  - Diarrhoea [Unknown]
  - Dyspepsia [Unknown]
  - Dry mouth [Unknown]
  - Eczema [Unknown]
